FAERS Safety Report 5259132-0 (Version None)
Quarter: 2007Q1

REPORT INFORMATION
  Report Type: 
  Country: None (occurrence: None)
  Receive Date: 20070305
  Receipt Date: 20070222
  Transmission Date: 20070707
  Serious: Yes (Death)
  Sender: FDA-Public Use
  Company Number: 13645635

PATIENT
  Sex: Male
  Weight: 136 kg

DRUGS (3)
  1. EMSAM [Suspect]
     Indication: DEPRESSION
     Dosage: 12 MILLIGRAM, 24 HOUR TD
     Dates: start: 20060801
  2. LAMICTAL [Suspect]
     Indication: DEPRESSION
  3. AMBIEN [Concomitant]

REACTIONS (2)
  - COMPLETED SUICIDE [None]
  - DRUG INEFFECTIVE [None]
